FAERS Safety Report 7021570-3 (Version None)
Quarter: 2010Q3

REPORT INFORMATION
  Report Type: 
  Country: None (occurrence: None)
  Receive Date: 20100928
  Receipt Date: 20100913
  Transmission Date: 20110219
  Serious: Yes (Other)
  Sender: FDA-Public Use
  Company Number: AUR-APL-2010-02311

PATIENT
  Age: 60 Year
  Sex: Female
  Weight: 95.2554 kg

DRUGS (10)
  1. LISINOPRIL AND HYDROCHLOROTHIAZIDE [Suspect]
     Dosage: ORAL
     Route: 048
  2. LYRICA [Suspect]
     Indication: NEURALGIA
     Dosage: 50MG, TWICE DAILY, ORAL
     Route: 048
     Dates: start: 20100801
  3. PREDNISONE [Suspect]
     Indication: POLYMYALGIA RHEUMATICA
     Dosage: 15MG-10MG AM/5MGPM - ORAL
     Route: 048
  4. PEXEVA [Suspect]
     Indication: FATIGUE
     Dosage: ORAL
     Route: 048
  5. LASIX [Suspect]
     Indication: FLUID RETENTION
     Dosage: 20MG - DAILY - ORAL
     Route: 048
  6. FOSAMAX [Suspect]
     Indication: CALCIUM DEFICIENCY
     Dosage: 70MG - WEEKLY - ORAL
     Route: 048
  7. SYNTHROID [Suspect]
     Indication: HYPOTHYROIDISM
     Dosage: 137MCG - TWICE A WK - ORAL
     Route: 048
  8. REQUIP [Suspect]
     Dosage: 1MG - DAILY - ORAL
     Route: 048
  9. LOVASTATIN [Suspect]
     Dosage: 40MG - TABLET - ORAL
     Route: 048
  10. PLAQUENIL [Concomitant]

REACTIONS (6)
  - DIZZINESS [None]
  - DYSKINESIA [None]
  - SYSTEMIC LUPUS ERYTHEMATOSUS [None]
  - THINKING ABNORMAL [None]
  - TREMOR [None]
  - WALKING AID USER [None]
